FAERS Safety Report 6791346-0 (Version None)
Quarter: 2010Q2

REPORT INFORMATION
  Report Type: 
  Country: None (occurrence: None)
  Receive Date: 20100624
  Receipt Date: 20100618
  Transmission Date: 20101027
  Serious: Yes (Other)
  Sender: FDA-Public Use
  Company Number: CA-B.I. PHARMACEUTICALS,INC./RIDGEFIELD-2010-DE-03361GD

PATIENT
  Age: 5 Year

DRUGS (4)
  1. DIPYRIDAMOLE [Suspect]
     Indication: ANTICOAGULANT THERAPY
     Dosage: 30 MG
  2. HEPARIN [Suspect]
     Indication: ANTICOAGULANT THERAPY
     Dosage: WEIGHT {20 KG: 2.5-10 UNITS/KG/H; WEIGHT }20 KG: 2.5-5.0 UNITS/KG/H
  3. IMMUNOSUPPRESSANT [Concomitant]
     Indication: IMMUNOSUPPRESSANT DRUG THERAPY
  4. CORTICOSTEROIDS [Concomitant]
     Indication: IMMUNOSUPPRESSANT DRUG THERAPY

REACTIONS (1)
  - HEPATIC HAEMATOMA [None]
